FAERS Safety Report 6461573-0 (Version None)
Quarter: 2009Q4

REPORT INFORMATION
  Report Type: 
  Country: None (occurrence: None)
  Receive Date: 20091123
  Receipt Date: 20091109
  Transmission Date: 20100525
  Serious: Yes (Death, Hospitalization)
  Sender: FDA-Public Use
  Company Number: 2009AC000051

PATIENT
  Age: 82 Year
  Sex: Male

DRUGS (53)
  1. DIGOXIN [Suspect]
     Dosage: 0.25 MG;PO
     Route: 048
     Dates: start: 20060301
  2. PROSCAR [Concomitant]
  3. PROTONIX [Concomitant]
  4. PREDNISONE [Concomitant]
  5. LIPITOR [Concomitant]
  6. AUGMENTIN [Concomitant]
  7. FLOMAX [Concomitant]
  8. COZAAR [Concomitant]
  9. GLUCOPHAGE [Concomitant]
  10. METFORMIN HCL [Concomitant]
  11. FOLIC ACID [Concomitant]
  12. LASIX [Concomitant]
  13. ALPRAZOLAM [Concomitant]
  14. RISPERDAL [Concomitant]
  15. AVANDIA [Concomitant]
  16. AMBIEN [Concomitant]
  17. ATENOLOL [Concomitant]
  18. ASPIRIN [Concomitant]
  19. SYNTHROID [Concomitant]
  20. NOVOLOG [Concomitant]
  21. NIFEREX 150 FORTE [Concomitant]
  22. LORTAB [Concomitant]
  23. CHROMAGEN [Concomitant]
  24. CORTISPORIN OINTMENT [Concomitant]
  25. LIPITOR [Concomitant]
  26. LEVOXYL [Concomitant]
  27. HYDROMET [Concomitant]
  28. PRILOSEC [Concomitant]
  29. ALLOPURINOL [Concomitant]
  30. COLCHICINE [Concomitant]
  31. K-DUR [Concomitant]
  32. TEMAZEPAM [Concomitant]
  33. QUININE SULFATE [Concomitant]
  34. PAXIL [Concomitant]
  35. TRAZODONE HCL [Concomitant]
  36. METHOTREXATE [Concomitant]
  37. GLIPIZIDE [Concomitant]
  38. HYDROCHLOROTHIAZIDE [Concomitant]
  39. ATENOL [Concomitant]
  40. LEVOXYL [Concomitant]
  41. GLIPIZIDE [Concomitant]
  42. HYDROCHLOROTHIAZIDE [Concomitant]
  43. ATENOL [Concomitant]
  44. LEVOXYL [Concomitant]
  45. GLIPIZIDE [Concomitant]
  46. PAXIL [Concomitant]
  47. AVANDIA [Concomitant]
  48. POTASSIUM [Concomitant]
  49. HYDROCODONE [Concomitant]
  50. GLUCOSAMINE [Concomitant]
  51. XANAX [Concomitant]
  52. ATENOLOL [Concomitant]
  53. GLUCOPHAGE [Concomitant]

REACTIONS (33)
  - ACTINIC KERATOSIS [None]
  - ANAEMIA [None]
  - ARTERIOSCLEROSIS [None]
  - ASTHENIA [None]
  - ATRIAL FIBRILLATION [None]
  - BACK PAIN [None]
  - BRADYCARDIA [None]
  - DEPRESSION [None]
  - DIZZINESS [None]
  - DYSPNOEA [None]
  - ECONOMIC PROBLEM [None]
  - ESSENTIAL HYPERTENSION [None]
  - FATIGUE [None]
  - HEPATOMEGALY [None]
  - HYPERTENSION [None]
  - HYPOTHYROIDISM [None]
  - INJURY [None]
  - MAGNESIUM METABOLISM DISORDER [None]
  - MALAISE [None]
  - MIXED HYPERLIPIDAEMIA [None]
  - MUSCULAR WEAKNESS [None]
  - NAUSEA [None]
  - NEUROPATHY PERIPHERAL [None]
  - OEDEMA [None]
  - OSTEOARTHRITIS [None]
  - OTITIS EXTERNA [None]
  - PAIN IN EXTREMITY [None]
  - PNEUMONIA ASPIRATION [None]
  - POLLAKIURIA [None]
  - RENAL FAILURE [None]
  - SYNCOPE [None]
  - VENOUS INSUFFICIENCY [None]
  - VOMITING [None]
